FAERS Safety Report 8616215-2 (Version None)
Quarter: 2012Q3

REPORT INFORMATION
  Report Type: 
  Country: None (occurrence: None)
  Receive Date: 20120823
  Receipt Date: 20120816
  Transmission Date: 20120928
  Serious: Yes (Other)
  Sender: FDA-Public Use
  Company Number: CA-AMGEN-CANSP2012052612

PATIENT
  Age: 81 Year
  Sex: Female
  Weight: 56.689 kg

DRUGS (1)
  1. PROLIA [Suspect]
     Indication: OSTEOPOROSIS
     Dosage: 60 MG, Q6MO
     Route: 058
     Dates: start: 20120522

REACTIONS (3)
  - OSTEONECROSIS OF JAW [None]
  - NECK PAIN [None]
  - PAIN IN JAW [None]
